FAERS Safety Report 15367712 (Version 1)
Quarter: 2018Q3

REPORT INFORMATION
  Report Type: Spontaneous
  Country: FR (occurrence: FR)
  Receive Date: 20180910
  Receipt Date: 20180910
  Transmission Date: 20181010
  Serious: Yes (Hospitalization, Other)
  Sender: FDA-Public Use
  Company Number: PHHY2018FR088613

PATIENT
  Age: 5 Year
  Sex: Female

DRUGS (1)
  1. CEFPODOXIME PROXETIL. [Suspect]
     Active Substance: CEFPODOXIME PROXETIL
     Indication: PRODUCT USED FOR UNKNOWN INDICATION
     Dosage: UNK
     Route: 048

REACTIONS (3)
  - Urticaria [Unknown]
  - Laryngeal oedema [Unknown]
  - Anaphylactic reaction [Unknown]
